FAERS Safety Report 14433666 (Version 1)
Quarter: 2018Q1

REPORT INFORMATION
  Report Type: Report from Study
  Country: ES (occurrence: ES)
  Receive Date: 20180124
  Receipt Date: 20180124
  Transmission Date: 20180509
  Serious: Yes (Death, Other)
  Sender: FDA-Public Use
  Company Number: ES-GLAXOSMITHKLINE-ES2018009859

PATIENT
  Age: 88 Year
  Sex: Female

DRUGS (2)
  1. TRIMETOPRIM [Suspect]
     Active Substance: TRIMETHOPRIM
     Indication: SUPERINFECTION MYCOBACTERIAL
     Dosage: TRIMETHOPRIM 160MG / SULFAMETHOXAZOLE 800MG 3 TIMES A WEEK (ALTERNATE DAYS)
     Route: 048
  2. ACYCLOVIR. [Suspect]
     Active Substance: ACYCLOVIR
     Indication: HERPES ZOSTER
     Dosage: 800MG PER DAY
     Route: 048
     Dates: start: 20161116, end: 20170108

REACTIONS (1)
  - Toxic epidermal necrolysis [Fatal]

NARRATIVE: CASE EVENT DATE: 20170110
